FAERS Safety Report 7658109-5 (Version None)
Quarter: 2011Q3

REPORT INFORMATION
  Report Type: 
  Country: None (occurrence: None)
  Receive Date: 20110805
  Receipt Date: 20110726
  Transmission Date: 20111222
  Serious: Yes (Hospitalization, Disabling, Other)
  Sender: FDA-Public Use
  Company Number: US-BAYER-201036062NA

PATIENT
  Age: 30 Year
  Sex: Female
  Weight: 79.365 kg

DRUGS (22)
  1. DICYCLOMINE [Concomitant]
     Indication: ABDOMINAL PAIN
     Dosage: 10 MG, EVERY 6 HOURS, AS NEEDED
     Dates: start: 20081008
  2. TRAMADOL HCL [Concomitant]
     Dosage: 50 MG, EVERY 6 HOURS, AS NEEDED
     Dates: start: 20090919
  3. AMBIEN [Concomitant]
     Indication: INSOMNIA
     Dosage: UNK
     Dates: start: 20080101
  4. METFORMIN HCL [Concomitant]
     Dosage: 500 MG, BID
     Dates: start: 20081008
  5. ORTHO TRI-CYCLEN LO [Concomitant]
     Dosage: UNK
     Dates: start: 20091001
  6. ASACOL [Concomitant]
     Indication: COLITIS MICROSCOPIC
     Dosage: 400 MG, QD
  7. PREDNISONE [Concomitant]
     Dosage: UNK
     Dates: start: 20081001
  8. OMNICEF [Concomitant]
     Dosage: 300 MG, BID
     Dates: start: 20081004
  9. HYDROCODONE BITARTRATE AND ACETAMINOPHEN [Concomitant]
     Indication: PAIN
     Dosage: EVERY 4 HOURS, AS NEEDED
     Dates: start: 20081008
  10. CIPROFLAXACIN [Concomitant]
     Dosage: 500 MG, BID
     Dates: start: 20090919
  11. METOPROLOL TARTRATE [Concomitant]
     Dosage: 50 MG, UNK
  12. GLUCOPHAGE [Concomitant]
     Indication: POLYCYSTIC OVARIES
     Dosage: 500 MG, BID
     Dates: start: 20050101
  13. COREG [Concomitant]
     Indication: PALPITATIONS
     Dosage: UNK UNK, BID
  14. MELATONIN [Concomitant]
     Dosage: 5 MG, QD
     Dates: start: 20081001
  15. CEFDINIR [Concomitant]
     Dosage: 300 MG, BID
     Dates: start: 20081008
  16. YASMIN [Suspect]
     Dosage: UNK
     Dates: start: 20040101, end: 20090101
  17. FLAGYL [Concomitant]
     Dosage: 500 MG, BID
     Dates: start: 20081001
  18. LISINOPRIL [Concomitant]
     Dosage: 10 MG, QD
     Dates: start: 20081008
  19. ROCEPHIN [Concomitant]
     Dosage: UNK
     Dates: start: 20081004
  20. PROTONIX [Concomitant]
     Dosage: 40 MG, QD
     Dates: start: 20081001
  21. DOXYCYCLINE [Concomitant]
     Dosage: UNK
     Dates: start: 20081001
  22. CLARITIN [Concomitant]
     Dosage: 10 MG, QD
     Dates: start: 20090919

REACTIONS (6)
  - SPHINCTER OF ODDI DYSFUNCTION [None]
  - HEART RATE INCREASED [None]
  - SINUS TACHYCARDIA [None]
  - CHOLECYSTITIS [None]
  - PAIN [None]
  - PALPITATIONS [None]
